FAERS Safety Report 7095611-1 (Version None)
Quarter: 2010Q4

REPORT INFORMATION
  Report Type: 
  Country: None (occurrence: None)
  Receive Date: 20101111
  Receipt Date: 20101102
  Transmission Date: 20110411
  Serious: Yes (Hospitalization)
  Sender: FDA-Public Use
  Company Number: US-ELI_LILLY_AND_COMPANY-US201011000882

PATIENT
  Sex: Male

DRUGS (4)
  1. HUMALOG [Suspect]
     Indication: DIABETES MELLITUS
     Dosage: 6 U, EACH MORNING
     Dates: start: 20100102
  2. HUMALOG [Suspect]
     Dosage: 6 U, OTHER
     Dates: start: 20100102
  3. HUMALOG [Suspect]
     Dosage: 15 U, EACH EVENING
     Dates: start: 20100102
  4. LANTUS [Concomitant]
     Dosage: UNK, EACH EVENING

REACTIONS (1)
  - CARDIAC OPERATION [None]
